FAERS Safety Report 5473757-9 (Version None)
Quarter: 2007Q4

REPORT INFORMATION
  Report Type: 
  Country: None (occurrence: None)
  Receive Date: 20071001
  Receipt Date: 20040324
  Transmission Date: 20080405
  Serious: Yes (Death)
  Sender: FDA-Public Use
  Company Number: US-PFIZER INC-2007057085

PATIENT
  Age: 2 Year
  Sex: Male

DRUGS (5)
  1. GENOTROPIN [Suspect]
     Indication: HYPOPITUITARISM
     Dosage: DAILY DOSE:.6MG
  2. LEVOTHYROXINE SODIUM [Concomitant]
     Dosage: DAILY DOSE:75MCG-FREQ:DAILY
  3. PREDNISONE [Concomitant]
  4. CARBAMAZEPINE [Concomitant]
  5. ZANTAC [Concomitant]

REACTIONS (2)
  - ADRENAL INSUFFICIENCY [None]
  - SUDDEN INFANT DEATH SYNDROME [None]
